FAERS Safety Report 10484872 (Version 3)
Quarter: 2015Q2

REPORT INFORMATION
  Report Type: Spontaneous
  Country: US (occurrence: US)
  Receive Date: 20140930
  Receipt Date: 20150413
  Transmission Date: 20150821
  Serious: Yes (Other)
  Sender: FDA-Public Use
  Company Number: US-BAYER-2014-143491

PATIENT
  Age: 37 Year
  Sex: Female
  Weight: 84.35 kg

DRUGS (2)
  1. MIRENA [Suspect]
     Active Substance: LEVONORGESTREL
     Indication: CONTRACEPTION
     Dosage: 20 MCG/24HR, CONT
     Route: 015
     Dates: start: 20140613, end: 20140923
  2. MIRENA [Suspect]
     Active Substance: LEVONORGESTREL
     Indication: MENORRHAGIA

REACTIONS (3)
  - Vaginal haemorrhage [None]
  - Device expulsion [Recovering/Resolving]
  - Abdominal pain lower [None]

NARRATIVE: CASE EVENT DATE: 2014
